FAERS Safety Report 17770155 (Version 2)
Quarter: 2020Q2

REPORT INFORMATION
  Report Type: Spontaneous
  Country: US (occurrence: US)
  Receive Date: 20200512
  Receipt Date: 20200520
  Transmission Date: 20200714
  Serious: Yes (Hospitalization, Other)
  Sender: FDA-Public Use
  Company Number: US-PFIZER INC-2020186701

PATIENT
  Age: 62 Year
  Sex: Male

DRUGS (3)
  1. PREDNISONE. [Concomitant]
     Active Substance: PREDNISONE
     Indication: ACUTE FEBRILE NEUTROPHILIC DERMATOSIS
     Dosage: UNK
  2. SULFAMETHOXAZOLE/TRIMETHOPRIM [Suspect]
     Active Substance: SULFAMETHOXAZOLE\TRIMETHOPRIM
     Indication: PROPHYLAXIS
     Dosage: UNK
  3. PREDNISONE. [Concomitant]
     Active Substance: PREDNISONE
     Indication: PROPHYLAXIS

REACTIONS (1)
  - Thrombotic microangiopathy [Recovered/Resolved with Sequelae]
